FAERS Safety Report 15355367 (Version 14)
Quarter: 2024Q4

REPORT INFORMATION
  Report Type: Report from Study
  Country: DE (occurrence: DE)
  Receive Date: 20180906
  Receipt Date: 20241002
  Transmission Date: 20250114
  Serious: No
  Sender: ROCHE
  Company Number: DE-ROCHE-2179879

PATIENT
  Age: 50 Year
  Sex: Female
  Weight: 79.0 kg

DRUGS (10)
  1. OCREVUS [Suspect]
     Active Substance: OCRELIZUMAB
     Indication: Relapsing-remitting multiple sclerosis
     Dosage: 600 MG ONCE IN 182 DAYS
     Route: 042
     Dates: start: 20180427, end: 20180511
  2. OCREVUS [Suspect]
     Active Substance: OCRELIZUMAB
     Dosage: SUBSEQUENT DOSES OF OCRELIZUMAB: 15/NOV/2019, 15/MAY/2020, 13/NOV/2020, 21/JUL/2021
     Route: 042
     Dates: start: 20181101
  3. OCREVUS [Suspect]
     Active Substance: OCRELIZUMAB
     Route: 042
  4. CORTISONE [Suspect]
     Active Substance: CORTISONE
     Indication: Multiple sclerosis relapse
     Dosage: START DATE: 18-SEP-2018
     Route: 042
     Dates: end: 20180920
  5. CORTISONE [Suspect]
     Active Substance: CORTISONE
     Route: 042
     Dates: start: 20180921, end: 20180921
  6. CORTISONE [Suspect]
     Active Substance: CORTISONE
     Route: 048
     Dates: start: 20180921, end: 20180921
  7. CORTISONE [Suspect]
     Active Substance: CORTISONE
     Dosage: 20X50MG TABLETS
     Route: 048
     Dates: start: 20180922, end: 20180922
  8. CHOLECALCIFEROL [Concomitant]
     Active Substance: CHOLECALCIFEROL
  9. COMIRNATY [Concomitant]
     Indication: COVID-19 prophylaxis
     Dosage: FIRST DOSE OF VACCINATION
     Dates: start: 20210428
  10. COMIRNATY [Concomitant]
     Dosage: SECOND DOSE OF VACCINATION
     Dates: start: 20210609

REACTIONS (35)
  - Dyspnoea [Recovered/Resolved]
  - Fatigue [Recovered/Resolved]
  - Nasopharyngitis [Recovered/Resolved]
  - Vertigo [Not Recovered/Not Resolved]
  - Asthenia [Recovered/Resolved]
  - Fatigue [Recovered/Resolved]
  - Headache [Recovered/Resolved]
  - Brain fog [Recovered/Resolved]
  - Emotional disorder [Recovered/Resolved]
  - Initial insomnia [Recovered/Resolved]
  - Abdominal discomfort [Recovered/Resolved]
  - Mood swings [Recovered/Resolved]
  - Malaise [Recovered/Resolved]
  - Abdominal pain upper [Recovered/Resolved]
  - Nausea [Recovering/Resolving]
  - Vomiting [Recovering/Resolving]
  - Feeling cold [Recovered/Resolved]
  - Hyperhidrosis [Recovered/Resolved]
  - Muscle spasticity [Recovered/Resolved]
  - Pulpitis dental [Recovered/Resolved]
  - Hyperaesthesia teeth [Recovered/Resolved]
  - Osteitis [Recovered/Resolved]
  - Headache [Recovered/Resolved]
  - Arthralgia [Recovered/Resolved]
  - Onychomycosis [Recovered/Resolved]
  - COVID-19 [Recovered/Resolved]
  - Vertigo [Recovering/Resolving]
  - Fungal infection [Not Recovered/Not Resolved]
  - Dermatitis [Not Recovered/Not Resolved]
  - Rash [Recovered/Resolved]
  - Lacrimation increased [Recovered/Resolved]
  - Eye irritation [Recovered/Resolved]
  - Haemorrhoids [Recovered/Resolved]
  - Muscle spasticity [Recovering/Resolving]
  - Muscular weakness [Recovering/Resolving]

NARRATIVE: CASE EVENT DATE: 20180427
